FAERS Safety Report 8958815 (Version 1)
Quarter: 2012Q4

REPORT INFORMATION
  Report Type: 
  Country: US (occurrence: US)
  Receive Date: 20121212
  Receipt Date: 20121212
  Transmission Date: 20130627
  Serious: Yes (Hospitalization, Other)
  Sender: FDA-Public Use
  Company Number: US-FRI-1000040835

PATIENT
  Age: 23 Year
  Sex: Female
  Weight: 106.5 kg

DRUGS (3)
  1. VIIBRYD [Suspect]
     Indication: POST-TRAUMATIC STRESS DISORDER
     Dosage: 10-40 mg
     Dates: end: 20120621
  2. VIIBRYD [Suspect]
     Indication: MAJOR DEPRESSION
  3. SYNTHROID [Concomitant]
     Dosage: 88 mcg
     Route: 048

REACTIONS (11)
  - Heart rate increased [Recovered/Resolved]
  - Loss of consciousness [Recovered/Resolved]
  - Panic reaction [Recovered/Resolved]
  - Confusional state [Recovered/Resolved]
  - Violence-related symptom [Recovered/Resolved]
  - Suicidal ideation [Recovered/Resolved]
  - Anxiety [Recovered/Resolved]
  - Mania [Recovered/Resolved]
  - Paraesthesia [Not Recovered/Not Resolved]
  - Hypoaesthesia [Not Recovered/Not Resolved]
  - Sensory disturbance [Not Recovered/Not Resolved]
